FAERS Safety Report 7449229-9 (Version None)
Quarter: 2011Q2

REPORT INFORMATION
  Report Type: 
  Country: None (occurrence: None)
  Receive Date: 20110502
  Receipt Date: 20110419
  Transmission Date: 20111010
  Serious: Yes (Hospitalization)
  Sender: FDA-Public Use
  Company Number: JP-BIOGENIDEC-2011BI015614

PATIENT
  Age: 47 Year
  Sex: Female

DRUGS (9)
  1. AVONEX [Suspect]
     Route: 030
     Dates: start: 20100904
  2. AVONEX [Suspect]
     Indication: SECONDARY PROGRESSIVE MULTIPLE SCLEROSIS
     Route: 030
     Dates: start: 20100302, end: 20100308
  3. ARICEPT [Concomitant]
     Dates: start: 20091201
  4. PAXIL [Concomitant]
     Dates: start: 20091101
  5. LENDORMIN D [Concomitant]
     Dates: start: 20091121
  6. AVONEX [Suspect]
     Route: 030
     Dates: start: 20100309, end: 20100811
  7. DEPAKENE [Concomitant]
     Dates: start: 20091001
  8. ALEVIATIN [Concomitant]
     Dates: start: 20100810
  9. ALMARL [Concomitant]
     Dates: start: 20100118

REACTIONS (4)
  - EPILEPSY [None]
  - DEHYDRATION [None]
  - UPPER RESPIRATORY TRACT INFECTION [None]
  - WHITE BLOOD CELL COUNT INCREASED [None]
